FAERS Safety Report 8280884-X (Version None)
Quarter: 2012Q2

REPORT INFORMATION
  Report Type: 
  Country: None (occurrence: None)
  Receive Date: 20120412
  Receipt Date: 20120328
  Transmission Date: 20120825
  Serious: Yes (Other)
  Sender: FDA-Public Use
  Company Number: ES-BAXTER-2012BAX000411

PATIENT
  Age: 67 Year
  Sex: Male

DRUGS (1)
  1. TISSUCOL STIM4 [Suspect]
     Dosage: 3 UNITS OF 2CC
     Route: 061
     Dates: start: 20120313, end: 20120313

REACTIONS (3)
  - SOFT TISSUE NECROSIS [None]
  - SMALL INTESTINAL HAEMORRHAGE [None]
  - PURULENT DISCHARGE [None]
